FAERS Safety Report 15574385 (Version 1)
Quarter: 2018Q4

REPORT INFORMATION
  Report Type: Spontaneous
  Country: US (occurrence: US)
  Receive Date: 20181031
  Receipt Date: 20181031
  Transmission Date: 20190205
  Serious: Yes (Life-Threatening, Hospitalization, Other)
  Sender: FDA-Public Use
  Company Number: None

PATIENT
  Age: 89 Year
  Sex: Male
  Weight: 82.3 kg

DRUGS (5)
  1. BROMOCRIPTINE 2.5 MG PO BID [Concomitant]
  2. DIOVAN 80 MG PO QD [Concomitant]
  3. ANDROGEL 1% QD [Concomitant]
  4. XARELTO [Suspect]
     Active Substance: RIVAROXABAN
     Indication: ATRIAL FIBRILLATION
     Route: 048
  5. BETAPACE 80 MG PO BID [Concomitant]

REACTIONS (7)
  - Haemorrhage intracranial [None]
  - Dysarthria [None]
  - Blood pressure increased [None]
  - Mental status changes [None]
  - Vomiting [None]
  - Headache [None]
  - Hemiparesis [None]

NARRATIVE: CASE EVENT DATE: 20181027
